FAERS Safety Report 17962163 (Version 2)
Quarter: 2021Q2

REPORT INFORMATION
  Report Type: Spontaneous
  Country: US (occurrence: US)
  Receive Date: 20200630
  Receipt Date: 20210614
  Transmission Date: 20210717
  Serious: No
  Sender: FDA-Public Use
  Company Number: US-PFIZER INC-2020250929

PATIENT
  Age: 62 Year
  Sex: Female

DRUGS (1)
  1. IBRANCE [Suspect]
     Active Substance: PALBOCICLIB
     Dosage: 75 MG
     Dates: start: 20180601

REACTIONS (5)
  - Dermatitis [Unknown]
  - Lymphoedema [Unknown]
  - Axillary mass [Unknown]
  - Skin infection [Unknown]
  - Immune system disorder [Unknown]
